FAERS Safety Report 23791579 (Version 9)
Quarter: 2025Q3

REPORT INFORMATION
  Report Type: Report from Study
  Country: BR (occurrence: BR)
  Receive Date: 20240429
  Receipt Date: 20250911
  Transmission Date: 20251021
  Serious: Yes (Other)
  Sender: BIOCON
  Company Number: BR-BIOCON-BCN-2023-000268

PATIENT

DRUGS (21)
  1. TRASTUZUMAB-DKST [Suspect]
     Active Substance: TRASTUZUMAB-DKST
     Indication: HER2 positive breast cancer
     Route: 042
     Dates: start: 20221202
  2. TRASTUZUMAB-DKST [Suspect]
     Active Substance: TRASTUZUMAB-DKST
     Route: 042
     Dates: start: 20221230
  3. TRASTUZUMAB-DKST [Suspect]
     Active Substance: TRASTUZUMAB-DKST
     Route: 042
     Dates: start: 20230120
  4. TRASTUZUMAB-DKST [Suspect]
     Active Substance: TRASTUZUMAB-DKST
     Route: 042
     Dates: start: 20230210
  5. TRASTUZUMAB-DKST [Suspect]
     Active Substance: TRASTUZUMAB-DKST
     Route: 042
     Dates: start: 20230303
  6. TRASTUZUMAB-DKST [Suspect]
     Active Substance: TRASTUZUMAB-DKST
     Route: 042
     Dates: start: 20230324
  7. TRASTUZUMAB-DKST [Suspect]
     Active Substance: TRASTUZUMAB-DKST
     Route: 042
     Dates: start: 20230414
  8. TRASTUZUMAB-DKST [Suspect]
     Active Substance: TRASTUZUMAB-DKST
     Route: 042
     Dates: start: 20230505
  9. TRASTUZUMAB-DKST [Suspect]
     Active Substance: TRASTUZUMAB-DKST
     Route: 042
     Dates: start: 20230526
  10. TRASTUZUMAB-DKST [Suspect]
     Active Substance: TRASTUZUMAB-DKST
     Route: 042
     Dates: start: 20230616
  11. TRASTUZUMAB-DKST [Suspect]
     Active Substance: TRASTUZUMAB-DKST
     Route: 042
     Dates: start: 20230707
  12. TRASTUZUMAB-DKST [Suspect]
     Active Substance: TRASTUZUMAB-DKST
     Route: 042
     Dates: start: 20230728
  13. TRASTUZUMAB-DKST [Suspect]
     Active Substance: TRASTUZUMAB-DKST
     Route: 042
     Dates: start: 20230818
  14. TRASTUZUMAB-DKST [Suspect]
     Active Substance: TRASTUZUMAB-DKST
     Route: 042
     Dates: start: 20230906
  15. TRASTUZUMAB-DKST [Suspect]
     Active Substance: TRASTUZUMAB-DKST
     Route: 042
     Dates: start: 20230929
  16. TRASTUZUMAB-DKST [Suspect]
     Active Substance: TRASTUZUMAB-DKST
     Route: 042
     Dates: start: 20231020
  17. PERTUZUMAB [Suspect]
     Active Substance: PERTUZUMAB
     Indication: HER2 positive breast cancer
     Route: 042
     Dates: start: 20221202
  18. LEVOTHYROXINE [Concomitant]
     Active Substance: LEVOTHYROXINE
     Indication: Hypothyroidism
     Dosage: 25 MCG/ML, QD
     Route: 065
     Dates: start: 20231208
  19. ZOLEDRONIC ACID [Concomitant]
     Active Substance: ZOLEDRONIC ACID
     Indication: Osteolysis
     Route: 065
     Dates: start: 20230606
  20. IBUPROFEN [Concomitant]
     Active Substance: IBUPROFEN
     Indication: Hyperaemia
     Route: 065
     Dates: start: 20230427, end: 20230501
  21. UREA [Concomitant]
     Active Substance: UREA
     Indication: Skin exfoliation
     Route: 061
     Dates: start: 20230508, end: 20230514

REACTIONS (15)
  - Hypothyroidism [Recovered/Resolved]
  - Skin exfoliation [Recovered/Resolved]
  - Herpes zoster [Recovered/Resolved]
  - Nausea [Recovered/Resolved]
  - Diarrhoea [Recovered/Resolved]
  - Paraesthesia [Recovered/Resolved]
  - Dizziness [Recovered/Resolved]
  - Fatigue [Recovered/Resolved]
  - Nausea [Recovered/Resolved]
  - Hyperaemia [Recovered/Resolved]
  - Arthralgia [Recovered/Resolved]
  - Stomatitis [Recovered/Resolved]
  - Hyperaemia [Recovered/Resolved]
  - Dyslipidaemia [Recovering/Resolving]
  - Vitamin D decreased [Recovering/Resolving]

NARRATIVE: CASE EVENT DATE: 20221209
